FAERS Safety Report 9214367 (Version 1)
Quarter: 2013Q2

REPORT INFORMATION
  Report Type: Spontaneous
  Country: US (occurrence: None)
  Receive Date: 20130403
  Receipt Date: 20130403
  Transmission Date: 20140414
  Serious: Yes (Death, Other)
  Sender: FDA-Public Use
  Company Number: DAV-AE-MTX-13-26

PATIENT
  Age: 80 Year
  Sex: Male

DRUGS (1)
  1. METHOTREXATE [Suspect]
     Indication: LYMPHOMA
     Dosage: /0.05ML, CNTD?BIWEEKLY

REACTIONS (2)
  - Keratitis [None]
  - Corneal disorder [None]
